FAERS Safety Report 8928897 (Version 1)
Quarter: 2012Q4

REPORT INFORMATION
  Report Type: 
  Country: US (occurrence: US)
  Receive Date: 20121128
  Receipt Date: 20121128
  Transmission Date: 20130627
  Serious: Yes (Hospitalization)
  Sender: FDA-Public Use
  Company Number: US-009507513-1211USA008794

PATIENT
  Age: 64 Year
  Sex: Female
  Weight: 64 kg

DRUGS (10)
  1. TEMODAR [Suspect]
     Indication: GLIOBLASTOMA MULTIFORME
     Dosage: 200 mg/m2, qd
     Route: 048
     Dates: start: 20090312, end: 20090420
  2. AVASTIN (BEVACIZUMAB) [Suspect]
     Indication: GLIOBLASTOMA MULTIFORME
     Dosage: 10 mg/kg, qow
     Route: 041
     Dates: start: 20090323
  3. AVASTIN (BEVACIZUMAB) [Suspect]
     Dosage: 10 UNK, UNK
     Route: 041
     Dates: start: 20120615
  4. ERLOTINIB HYDROCHLORIDE [Suspect]
     Indication: GLIOBLASTOMA MULTIFORME
     Dosage: 500 mg, qd
     Route: 048
     Dates: start: 20090312
  5. DILANTIN [Concomitant]
     Dosage: UNK
     Dates: start: 20090201
  6. HYDROCHLOROTHIAZIDE [Concomitant]
     Dosage: UNK
  7. LIPITOR [Concomitant]
     Dosage: UNK
     Dates: start: 200403
  8. DECADRON (DEXAMETHASONE) [Concomitant]
     Dosage: UNK
     Dates: start: 20090507
  9. FOSAMAX [Concomitant]
     Dosage: UNK
     Dates: start: 200403
  10. BENICAR [Concomitant]
     Dosage: UNK

REACTIONS (4)
  - Pneumonitis [Unknown]
  - Convulsion [Recovered/Resolved]
  - Liver function test abnormal [Recovered/Resolved]
  - Hypoxia [Unknown]
